FAERS Safety Report 19091076 (Version 4)
Quarter: 2025Q2

REPORT INFORMATION
  Report Type: Report from Study
  Country: IT (occurrence: IT)
  Receive Date: 20210405
  Receipt Date: 20250619
  Transmission Date: 20250717
  Serious: Yes (Other)
  Sender: AUROBINDO
  Company Number: IT-009507513-2012ITA003714

PATIENT
  Age: 39 Year
  Sex: Male

DRUGS (15)
  1. DARUNAVIR [Interacting]
     Active Substance: DARUNAVIR
     Indication: HIV infection
     Route: 065
  2. DARUNAVIR [Interacting]
     Active Substance: DARUNAVIR
     Dosage: 2 UNK, ONCE A DAY (UNK, BID)
     Route: 065
  3. DARUNAVIR [Interacting]
     Active Substance: DARUNAVIR
     Dosage: 1 UNK, ONCE A DAY (UNK, QD)
     Route: 065
  4. LAMIVUDINE [Suspect]
     Active Substance: LAMIVUDINE
     Indication: HIV infection
     Route: 065
  5. TENOFOVIR DISOPROXIL [Suspect]
     Active Substance: TENOFOVIR DISOPROXIL
     Indication: HIV infection
     Route: 065
  6. ABACAVIR [Suspect]
     Active Substance: ABACAVIR
     Indication: HIV infection
  7. EMTRICITABINE [Suspect]
     Active Substance: EMTRICITABINE
     Indication: HIV infection
     Route: 065
  8. MARAVIROC [Suspect]
     Active Substance: MARAVIROC
     Indication: HIV infection
     Route: 065
  9. RALTEGRAVIR [Suspect]
     Active Substance: RALTEGRAVIR
     Indication: HIV infection
     Route: 065
  10. RALTEGRAVIR POTASSIUM [Interacting]
     Active Substance: RALTEGRAVIR POTASSIUM
     Indication: HIV infection
     Route: 048
  11. RITONAVIR [Interacting]
     Active Substance: RITONAVIR
     Indication: HIV infection
     Route: 065
  12. RITONAVIR [Interacting]
     Active Substance: RITONAVIR
     Dosage: 1 UNK, ONCE A DAY (UNK, QD)
     Route: 065
  13. RITONAVIR [Interacting]
     Active Substance: RITONAVIR
     Dosage: 2 UNK, ONCE A DAY (UNK, BID)
     Route: 065
  14. ZIDOVUDINE [Suspect]
     Active Substance: ZIDOVUDINE
     Indication: HIV infection
     Route: 065
  15. DOLUTEGRAVIR [Concomitant]
     Active Substance: DOLUTEGRAVIR
     Indication: HIV infection
     Route: 065

REACTIONS (4)
  - CSF HIV escape syndrome [Recovering/Resolving]
  - Labelled drug-drug interaction issue [Unknown]
  - Treatment noncompliance [Unknown]
  - Drug ineffective [Unknown]
